FAERS Safety Report 9242710 (Version 1)
Quarter: 2013Q2

REPORT INFORMATION
  Report Type: Spontaneous
  Country: ES (occurrence: ES)
  Receive Date: 20130419
  Receipt Date: 20130419
  Transmission Date: 20140414
  Serious: Yes (Death, Hospitalization)
  Sender: FDA-Public Use
  Company Number: ES-JNJFOC-20130406228

PATIENT
  Age: 89 Year
  Sex: Female

DRUGS (1)
  1. RISPERDAL ORAL [Suspect]
     Indication: AGGRESSION
     Route: 048
     Dates: start: 20130409, end: 20130409

REACTIONS (4)
  - Cardiac failure [Fatal]
  - Depressed level of consciousness [Unknown]
  - Electrolyte imbalance [Unknown]
  - Blood sodium increased [Unknown]
